FAERS Safety Report 5633201-5 (Version None)
Quarter: 2008Q1

REPORT INFORMATION
  Report Type: 
  Country: None (occurrence: None)
  Receive Date: 20080215
  Receipt Date: 20070402
  Transmission Date: 20080703
  Serious: Yes (Hospitalization)
  Sender: FDA-Public Use
  Company Number: 6031722

PATIENT
  Age: 41 Year
  Sex: Male

DRUGS (2)
  1. AZATHIOPRINE [Suspect]
     Indication: COLITIS ULCERATIVE
     Dosage: 1,8 MG/KG (1,8 MG/KG, 1 IN 1 D)
  2. METHYLPREDNISOLONE [Concomitant]

REACTIONS (20)
  - ACUTE RESPIRATORY DISTRESS SYNDROME [None]
  - ALANINE AMINOTRANSFERASE INCREASED [None]
  - ALVEOLITIS ALLERGIC [None]
  - ASPARTATE AMINOTRANSFERASE INCREASED [None]
  - BLOOD LACTATE DEHYDROGENASE INCREASED [None]
  - BLOOD URIC ACID INCREASED [None]
  - CARDIOMEGALY [None]
  - COLITIS ULCERATIVE [None]
  - CRYPTOGENIC ORGANISING PNEUMONIA [None]
  - DISEASE RECURRENCE [None]
  - GAMMA-GLUTAMYLTRANSFERASE INCREASED [None]
  - HAEMATOCRIT DECREASED [None]
  - HAEMOGLOBIN DECREASED [None]
  - HEPATOMEGALY [None]
  - INTERSTITIAL LUNG DISEASE [None]
  - ORTHOSTATIC HYPOTENSION [None]
  - PLATELET COUNT INCREASED [None]
  - PLEURAL EFFUSION [None]
  - RESPIRATORY FAILURE [None]
  - SEPSIS [None]
